FAERS Safety Report 8070677-0 (Version None)
Quarter: 2012Q1

REPORT INFORMATION
  Report Type: 
  Country: None (occurrence: None)
  Receive Date: 20120125
  Receipt Date: 20120119
  Transmission Date: 20120608
  Serious: Yes (Hospitalization)
  Sender: FDA-Public Use
  Company Number: PHHY2012JP004847

PATIENT
  Age: 53 Year
  Sex: Female
  Weight: 56 kg

DRUGS (5)
  1. TEGRETOL [Suspect]
     Dosage: 200 MG, BID
     Route: 048
     Dates: start: 20111109, end: 20111130
  2. EXFORGE [Concomitant]
     Route: 048
  3. TRICHLORMETHIAZIDE [Concomitant]
     Route: 048
  4. CADUET [Concomitant]
     Route: 048
  5. TEGRETOL [Suspect]
     Indication: CENTRAL PAIN SYNDROME
     Dosage: 100 MG, BID
     Route: 048
     Dates: start: 20111026, end: 20111108

REACTIONS (6)
  - LIVER DISORDER [None]
  - ARTHRALGIA [None]
  - RASH [None]
  - PYREXIA [None]
  - MALAISE [None]
  - NASOPHARYNGITIS [None]
